FAERS Safety Report 14833057 (Version 1)
Quarter: 2018Q2

REPORT INFORMATION
  Report Type: Spontaneous
  Country: US (occurrence: US)
  Receive Date: 20180416
  Receipt Date: 20180416
  Transmission Date: 20180711
  Serious: Yes (Hospitalization)
  Sender: FDA-Public Use
  Company Number: None

PATIENT
  Age: 63 Year
  Sex: Male
  Weight: 107 kg

DRUGS (2)
  1. GEMCITABINE [Suspect]
     Active Substance: GEMCITABINE\GEMCITABINE HYDROCHLORIDE
     Indication: PANCREATIC CARCINOMA
     Dosage: ?          OTHER FREQUENCY:DAY 1, 8, 15 Q4WKS;?
     Route: 042
     Dates: start: 20171201, end: 20180112
  2. PACLITAXEL/ALBUMIN [Concomitant]
     Dates: start: 20171201, end: 20180112

REACTIONS (5)
  - Dyspnoea [None]
  - Lethargy [None]
  - Pyrexia [None]
  - Pneumonitis [None]
  - Asthenia [None]

NARRATIVE: CASE EVENT DATE: 20180121
